FAERS Safety Report 25073630 (Version 1)
Quarter: 2025Q1

REPORT INFORMATION
  Report Type: Spontaneous
  Country: US (occurrence: None)
  Receive Date: 20250312
  Receipt Date: 20250312
  Transmission Date: 20250409
  Serious: Yes (Other)
  Sender: FDA-CTU
  Company Number: None

PATIENT
  Age: 50 Year
  Sex: Female

DRUGS (12)
  1. ERGOLOID MESYLATES\PENTOXIFYLLINE\SILDENAFIL [Suspect]
     Active Substance: ERGOLOID MESYLATES\PENTOXIFYLLINE\SILDENAFIL
     Indication: Female sexual arousal disorder
     Route: 061
     Dates: start: 20250312, end: 20250312
  2. ATENOLOL [Concomitant]
     Active Substance: ATENOLOL
  3. HYDROCHLOROTHIAZIDE [Concomitant]
     Active Substance: HYDROCHLOROTHIAZIDE
  4. LEVOTHYROXINE [Concomitant]
     Active Substance: LEVOTHYROXINE
  5. LORATADINE [Concomitant]
     Active Substance: LORATADINE
  6. oral progesterone [Concomitant]
  7. intradermal estrogen [Concomitant]
  8. TESTOSTERONE [Concomitant]
     Active Substance: TESTOSTERONE
  9. LORAZEPAM [Concomitant]
     Active Substance: LORAZEPAM
  10. womens multivitamin [Concomitant]
  11. apple cider gummies [Concomitant]
  12. PROBIOTICS NOS [Concomitant]
     Active Substance: PROBIOTICS NOS

REACTIONS (12)
  - Paraesthesia oral [None]
  - Paraesthesia oral [None]
  - Dry mouth [None]
  - Anxiety [None]
  - Dizziness [None]
  - Headache [None]
  - Depressed mood [None]
  - Blood pressure increased [None]
  - Heart rate increased [None]
  - Product formulation issue [None]
  - Therapy cessation [None]
  - Panic attack [None]

NARRATIVE: CASE EVENT DATE: 20250312
